FAERS Safety Report 6617240-3 (Version None)
Quarter: 2010Q1

REPORT INFORMATION
  Report Type: 
  Country: None (occurrence: None)
  Receive Date: 20100307
  Receipt Date: 20090825
  Transmission Date: 20100710
  Serious: No
  Sender: FDA-Public Use
  Company Number: US-BAYER-200835780NA

PATIENT
  Sex: Male

DRUGS (16)
  1. MAGNEVIST [Suspect]
     Indication: NUCLEAR MAGNETIC RESONANCE IMAGING
  2. OMNISCAN [Suspect]
     Indication: NUCLEAR MAGNETIC RESONANCE IMAGING
     Dates: start: 19890313, end: 19890313
  3. OMNISCAN [Suspect]
     Dosage: 3 PROCEDURES IN 1988
     Dates: start: 19880101, end: 19880101
  4. OMNISCAN [Suspect]
     Dosage: 2 PROCEDURES IN 1989
     Dates: start: 19890101, end: 19890101
  5. OMNISCAN [Suspect]
     Dosage: 1 PROCEDURE IN 1990
     Dates: start: 19900101, end: 19900101
  6. OMNISCAN [Suspect]
     Dosage: 3 PROCEDURES IN 1992
     Dates: start: 19920101, end: 19920101
  7. OMNISCAN [Suspect]
     Dosage: 4 PROCEDURES IN 2001
     Dates: start: 20010101, end: 20010101
  8. OMNISCAN [Suspect]
     Dosage: 10 PROCEDURES IN 2002
     Dates: start: 20020101, end: 20020101
  9. OMNISCAN [Suspect]
     Dosage: 7 PROCEDURES IN 2003
     Dates: start: 20030101, end: 20030101
  10. OMNISCAN [Suspect]
     Dosage: 6 PROCEDURES IN 2004
     Dates: start: 20040101, end: 20040101
  11. OMNISCAN [Suspect]
     Dosage: 10 PROCEDURES IN 2005
     Dates: start: 20050101, end: 20050101
  12. OMNISCAN [Suspect]
     Dosage: 7 PROCEDURES IN 2006
     Dates: start: 20060101, end: 20060101
  13. OMNISCAN [Suspect]
     Dosage: 3 PROCEDURES IN 2007
     Dates: start: 20070101, end: 20070101
  14. OPTIMARK [Suspect]
     Indication: NUCLEAR MAGNETIC RESONANCE IMAGING
  15. PROHANCE [Suspect]
     Indication: NUCLEAR MAGNETIC RESONANCE IMAGING
  16. MULTIHANCE [Suspect]
     Indication: NUCLEAR MAGNETIC RESONANCE IMAGING

REACTIONS (3)
  - ANXIETY [None]
  - NEPHROGENIC SYSTEMIC FIBROSIS [None]
  - PAIN [None]
